FAERS Safety Report 5675973-X (Version None)
Quarter: 2008Q1

REPORT INFORMATION
  Report Type: 
  Country: None (occurrence: None)
  Receive Date: 20080318
  Receipt Date: 20080229
  Transmission Date: 20080703
  Serious: Yes (Death)
  Sender: FDA-Public Use
  Company Number: 2008030003

PATIENT

DRUGS (3)
  1. FELBATOL [Suspect]
     Indication: EPILEPSY
  2. CARBAMAZEPINE [Concomitant]
  3. LEVETIRACETAM [Concomitant]

REACTIONS (3)
  - EPILEPSY [None]
  - PULMONARY EMBOLISM [None]
  - SUDDEN DEATH [None]
